FAERS Safety Report 16677372 (Version 1)
Quarter: 2019Q3

REPORT INFORMATION
  Report Type: Spontaneous
  Country: US (occurrence: US)
  Receive Date: 20190807
  Receipt Date: 20190807
  Transmission Date: 20191004
  Serious: Yes (Other)
  Sender: FDA-Public Use
  Company Number: US-BEH-2019105100

PATIENT
  Sex: Female

DRUGS (1)
  1. HIZENTRA [Suspect]
     Active Substance: HUMAN IMMUNOGLOBULIN G
     Indication: BRONCHIECTASIS
     Dosage: 8 GRAM, QW
     Route: 058
     Dates: start: 201711

REACTIONS (3)
  - Product use in unapproved indication [Unknown]
  - Nephrolithiasis [Unknown]
  - No adverse event [Unknown]
